FAERS Safety Report 8225672-5 (Version None)
Quarter: 2012Q1

REPORT INFORMATION
  Report Type: 
  Country: None (occurrence: None)
  Receive Date: 20120321
  Receipt Date: 20120314
  Transmission Date: 20120608
  Serious: Yes (Other)
  Sender: FDA-Public Use
  Company Number: US-US-EMD SERONO, INC.-7119497

PATIENT
  Sex: Female
  Weight: 70 kg

DRUGS (3)
  1. UNSPECIFIED [Concomitant]
     Indication: IRRITABLE BOWEL SYNDROME
  2. UNSPECIFIED [Concomitant]
     Indication: ANXIETY
  3. REBIF [Suspect]
     Indication: MULTIPLE SCLEROSIS
     Route: 058
     Dates: start: 20110322

REACTIONS (2)
  - STAPHYLOCOCCAL INFECTION [None]
  - INJECTION SITE REACTION [None]
